FAERS Safety Report 9401273 (Version 2)
Quarter: 2013Q3

REPORT INFORMATION
  Report Type: Spontaneous
  Country: GB (occurrence: GB)
  Receive Date: 20130715
  Receipt Date: 20130815
  Transmission Date: 20140515
  Serious: Yes (Hospitalization)
  Sender: FDA-Public Use
  Company Number: GB-ACTAVIS-2013-12331

PATIENT
  Age: 34 Year
  Sex: Female

DRUGS (4)
  1. IRINOTECAN HYDROCHLORIDE (UNKNOWN) [Suspect]
     Indication: COLORECTAL CANCER
     Dosage: UNK, UNKNOWN
     Route: 042
     Dates: start: 20130430
  2. CALCIUM FOLINATE (UNKNOWN) [Suspect]
     Indication: PRODUCT USED FOR UNKNOWN INDICATION
     Dosage: UNK, UNKNOWN
     Route: 065
     Dates: start: 20130514
  3. FLUOROURACIL /00098802/ [Suspect]
     Indication: COLORECTAL CANCER
     Dosage: UNK, UNKNOWN
     Route: 042
     Dates: start: 20130430
  4. AFLIBERCEPT [Suspect]
     Indication: COLORECTAL CANCER
     Dosage: 275 MG, UNKNOWN
     Route: 042
     Dates: start: 20130514

REACTIONS (2)
  - Sepsis [Recovered/Resolved]
  - Mucosal inflammation [Recovered/Resolved]
